FAERS Safety Report 14861515 (Version 1)
Quarter: 2018Q2

REPORT INFORMATION
  Report Type: Spontaneous
  Country: QA (occurrence: QA)
  Receive Date: 20180508
  Receipt Date: 20180508
  Transmission Date: 20180711
  Serious: Yes (Other)
  Sender: FDA-Public Use
  Company Number: QA-ELI_LILLY_AND_COMPANY-QA201805000599

PATIENT
  Age: 38 Year
  Sex: Female
  Weight: 73 kg

DRUGS (6)
  1. AERIUS [Concomitant]
     Active Substance: DESLORATADINE
     Indication: SINUSITIS
     Dosage: UNK, UNKNOWN
     Route: 065
  2. PROZAC [Suspect]
     Active Substance: FLUOXETINE HYDROCHLORIDE
     Indication: DEPRESSION
  3. MUSCADOL [Concomitant]
     Indication: BACK PAIN
     Dosage: UNK, PRN
     Route: 048
  4. PROFEN                             /00109201/ [Concomitant]
     Indication: PAIN IN EXTREMITY
     Dosage: UNK, UNKNOWN
     Route: 065
  5. PROZAC [Suspect]
     Active Substance: FLUOXETINE HYDROCHLORIDE
     Indication: ANXIETY
     Dosage: 20 MG, UNKNOWN
     Route: 048
     Dates: start: 201612
  6. ADVIL [Concomitant]
     Active Substance: IBUPROFEN
     Indication: PAIN IN EXTREMITY
     Dosage: UNK, UNKNOWN
     Route: 065

REACTIONS (5)
  - Weight increased [Not Recovered/Not Resolved]
  - Influenza [Not Recovered/Not Resolved]
  - Mood swings [Not Recovered/Not Resolved]
  - Swelling face [Not Recovered/Not Resolved]
  - Fluid retention [Not Recovered/Not Resolved]
